FAERS Safety Report 11293221 (Version 1)
Quarter: 2015Q3

REPORT INFORMATION
  Report Type: Spontaneous
  Country: CN (occurrence: CN)
  Receive Date: 20150722
  Receipt Date: 20150722
  Transmission Date: 20151125
  Serious: Yes (Other)
  Sender: FDA-Public Use
  Company Number: CN-MYLANLABS-2015M1024104

PATIENT

DRUGS (4)
  1. DEXAMETHASONE. [Suspect]
     Active Substance: DEXAMETHASONE
     Indication: PLASMABLASTIC LYMPHOMA
     Dosage: 20MG ON D1, 2, 4, 5, 8, 9, 11, 12; ONE CYCLE
     Route: 048
  2. BORTEZOMIB [Suspect]
     Active Substance: BORTEZOMIB
     Indication: PLASMABLASTIC LYMPHOMA
     Dosage: 1.3MG/M2 ON D1, 4, 8, 11; ONE CYCLE
     Route: 042
  3. EPIRUBICIN [Suspect]
     Active Substance: EPIRUBICIN
     Indication: PLASMABLASTIC LYMPHOMA
     Dosage: 20MG ON D1-4; ONE CYCLE
     Route: 042
  4. ITRACONAZOLE. [Concomitant]
     Active Substance: ITRACONAZOLE
     Indication: ANTIFUNGAL PROPHYLAXIS
     Route: 048

REACTIONS (3)
  - Ileus paralytic [Recovered/Resolved]
  - Thrombocytopenia [Recovered/Resolved]
  - Lung infection [Unknown]
